FAERS Safety Report 6386050-7 (Version None)
Quarter: 2009Q4

REPORT INFORMATION
  Report Type: 
  Country: None (occurrence: None)
  Receive Date: 20091002
  Receipt Date: 20081107
  Transmission Date: 20100525
  Serious: No
  Sender: FDA-Public Use
  Company Number: US-ASTRAZENECA-2008UW24916

PATIENT
  Sex: Female

DRUGS (1)
  1. ARIMIDEX [Suspect]
     Route: 048

REACTIONS (5)
  - ALOPECIA [None]
  - ARTHRALGIA [None]
  - DYSPAREUNIA [None]
  - OVARIAN CYST [None]
  - VULVOVAGINAL DRYNESS [None]
